FAERS Safety Report 21069324 (Version 1)
Quarter: 2022Q3

REPORT INFORMATION
  Report Type: Spontaneous
  Country: US (occurrence: None)
  Receive Date: 20220711
  Receipt Date: 20220711
  Transmission Date: 20221027
  Serious: Yes (Death)
  Sender: FDA-Public Use
  Company Number: None

PATIENT
  Age: 85 Year
  Sex: Male
  Weight: 73.84 kg

DRUGS (1)
  1. BEBTELOVIMAB [Suspect]
     Active Substance: BEBTELOVIMAB
     Indication: COVID-19
     Dosage: 2ML  ?
     Route: 040
     Dates: start: 20220624, end: 20220624

REACTIONS (3)
  - General physical health deterioration [None]
  - Respiratory distress [None]
  - Oxygen consumption increased [None]

NARRATIVE: CASE EVENT DATE: 20220628
